FAERS Safety Report 4468412-8 (Version None)
Quarter: 2004Q4

REPORT INFORMATION
  Report Type: 
  Country: None (occurrence: None)
  Receive Date: 20041007
  Receipt Date: 20040930
  Transmission Date: 20050328
  Serious: Yes (Death)
  Sender: FDA-Public Use
  Company Number: PHNU2004DE03387

PATIENT
  Age: 41 Year
  Sex: Female

DRUGS (3)
  1. METHERGINE [Suspect]
     Dosage: UNK, ONCE/SINGLE
     Route: 065
     Dates: start: 20040101, end: 20040101
  2. OXYTOCIN [Suspect]
     Dosage: UNK, ONCE/SINGLE
     Route: 065
     Dates: start: 20040101, end: 20040101
  3. ANAESTHETICS [Suspect]

REACTIONS (3)
  - DRUG INTERACTION [None]
  - HYPOXIA [None]
  - HYPOXIC ENCEPHALOPATHY [None]
